FAERS Safety Report 9888683 (Version 6)
Quarter: 2014Q3

REPORT INFORMATION
  Report Type: Report from Study
  Country: FR (occurrence: FR)
  Receive Date: 20140211
  Receipt Date: 20140909
  Transmission Date: 20150326
  Serious: Yes (Death, Other)
  Sender: FDA-Public Use
  Company Number: FR-GLAXOSMITHKLINE-B0967820A

PATIENT
  Age: 66 Year
  Sex: Female

DRUGS (7)
  1. ZOPICLONE [Concomitant]
     Active Substance: ZOPICLONE
     Dates: start: 20130919, end: 20140306
  2. VALACYCLOVIR [Concomitant]
     Active Substance: VALACYCLOVIR HYDROCHLORIDE
     Dates: start: 20130919
  3. FILGRASTIM [Concomitant]
     Active Substance: FILGRASTIM
     Dates: start: 20130919
  4. NORMAL IMMUNOGLOBULIN [Concomitant]
     Dates: start: 20130919, end: 20140306
  5. SULPHAMETHOXAZOLE WITH TRIMETHOPRIM [Concomitant]
     Dates: start: 20130919
  6. OFATUMUMAB [Suspect]
     Active Substance: OFATUMUMAB
     Indication: CHRONIC LYMPHOCYTIC LEUKAEMIA
     Dosage: 2G WEEKLY
     Route: 042
     Dates: start: 20131210, end: 20140130
  7. EPREX [Concomitant]
     Active Substance: ERYTHROPOIETIN
     Dates: start: 20130919

REACTIONS (1)
  - Progressive multifocal leukoencephalopathy [Fatal]

NARRATIVE: CASE EVENT DATE: 20140130
